FAERS Safety Report 4952899-8 (Version None)
Quarter: 2006Q1

REPORT INFORMATION
  Report Type: 
  Country: None (occurrence: None)
  Receive Date: 20060324
  Receipt Date: 20060314
  Transmission Date: 20060701
  Serious: Yes (Hospitalization)
  Sender: FDA-Public Use
  Company Number: PHEH2006US03384

PATIENT
  Age: 62 Year
  Sex: Female

DRUGS (7)
  1. METHADONE HCL [Concomitant]
  2. FIORINAL W/CODEINE [Concomitant]
  3. CELEXA [Concomitant]
  4. RISPERDAL [Concomitant]
  5. PEPCID [Concomitant]
  6. FENTANYL [Concomitant]
  7. EXJADE [Suspect]
     Indication: BLOOD IRON INCREASED
     Dosage: 1250 MG, QD
     Route: 048
     Dates: start: 20060120, end: 20060307

REACTIONS (2)
  - DEHYDRATION [None]
  - MIGRAINE [None]
